FAERS Safety Report 4415014-5 (Version None)
Quarter: 2004Q3

REPORT INFORMATION
  Report Type: 
  Country: None (occurrence: None)
  Receive Date: 20040804
  Receipt Date: 20040721
  Transmission Date: 20050211
  Serious: Yes (Life-Threatening, Hospitalization)
  Sender: FDA-Public Use
  Company Number: JP-ROCHE-374847

PATIENT
  Age: 80 Year
  Sex: Male

DRUGS (3)
  1. TORSEMIDE [Suspect]
     Route: 048
     Dates: start: 20040616, end: 20040710
  2. HOKUNALIN [Concomitant]
     Dosage: FORM REPORTED AS TAPE.
     Dates: start: 20030615, end: 20040710
  3. AMOBAN [Concomitant]

REACTIONS (3)
  - ALANINE AMINOTRANSFERASE INCREASED [None]
  - ASPARTATE AMINOTRANSFERASE INCREASED [None]
  - HEPATITIS ACUTE [None]
